FAERS Safety Report 8584841-5 (Version None)
Quarter: 2012Q3

REPORT INFORMATION
  Report Type: 
  Country: None (occurrence: None)
  Receive Date: 20120810
  Receipt Date: 20120807
  Transmission Date: 20120928
  Serious: Yes (Other)
  Sender: FDA-Public Use
  Company Number: US-JNJFOC-20120606499

PATIENT
  Sex: Female
  Weight: 62.6 kg

DRUGS (64)
  1. DURAGESIC-100 [Suspect]
     Dosage: 75 UG/HR OR 100 UG/HR
     Route: 062
  2. DURAGESIC-100 [Suspect]
     Indication: SPINAL DISORDER
     Route: 062
     Dates: end: 20040101
  3. DURAGESIC-100 [Suspect]
     Dosage: 75 UG/HR OR 100 UG/HR
     Route: 062
  4. FENTANYL-100 [Suspect]
     Route: 062
  5. FENTANYL-100 [Suspect]
     Route: 062
     Dates: start: 20080101
  6. FENTANYL-100 [Suspect]
     Indication: FIBROMYALGIA
     Dosage: 100 UG/HR + 25 UG/HR
     Route: 062
     Dates: start: 20080101
  7. FENTANYL-100 [Suspect]
     Route: 062
     Dates: start: 20090101
  8. FENTANYL-100 [Suspect]
     Route: 062
  9. DURAGESIC-100 [Suspect]
     Dosage: 100 UG/HR + 25 UG/HR
     Route: 062
     Dates: start: 20090101
  10. DURAGESIC-100 [Suspect]
     Dosage: 100 UG/HR + 25 UG/HR
     Route: 062
     Dates: start: 20080101
  11. DURAGESIC-100 [Suspect]
     Route: 062
     Dates: start: 20080101
  12. DURAGESIC-100 [Suspect]
     Route: 062
  13. FENTANYL-100 [Suspect]
     Route: 062
     Dates: start: 20080101
  14. FENTANYL-100 [Suspect]
     Route: 062
  15. FENTANYL-100 [Suspect]
     Route: 062
     Dates: start: 20080101
  16. FENTANYL-100 [Suspect]
     Route: 062
     Dates: start: 20090101
  17. DURAGESIC-100 [Suspect]
     Indication: RAYNAUD'S PHENOMENON
     Route: 062
  18. DURAGESIC-100 [Suspect]
     Route: 062
     Dates: start: 20080101, end: 20090101
  19. DURAGESIC-100 [Suspect]
     Route: 062
     Dates: start: 20080101, end: 20090101
  20. DURAGESIC-100 [Suspect]
     Dosage: 75 UG/HR OR 100 UG/HR
     Route: 062
  21. DURAGESIC-100 [Suspect]
     Dosage: 100 UG/HR + 25 UG/HR
     Route: 062
     Dates: start: 20080101
  22. DURAGESIC-100 [Suspect]
     Dosage: 75 UG/HR OR 100 UG/HR
     Route: 062
  23. FENTANYL-100 [Suspect]
     Dosage: 75 UG/HR OR 100 UG/HR
     Route: 062
  24. FENTANYL-100 [Suspect]
     Dosage: 75 UG/HR OR 100 UG/HR
     Route: 062
  25. FENTANYL-100 [Suspect]
     Dosage: 75 UG/HR OR 100 UG/HR
     Route: 062
  26. FENTANYL-100 [Suspect]
     Dosage: 75 UG/HR OR 100 UG/HR
     Route: 062
  27. DURAGESIC-100 [Suspect]
     Indication: MIGRAINE
     Route: 062
     Dates: end: 20040101
  28. DURAGESIC-100 [Suspect]
     Dosage: 75 UG/HR OR 100 UG/HR
     Route: 062
  29. DURAGESIC-100 [Suspect]
     Dosage: 100 UG/HR + 25 UG/HR
     Route: 062
     Dates: start: 20080101
  30. DURAGESIC-100 [Suspect]
     Dosage: 75 UG/HR OR 100 UG/HR
     Route: 062
  31. DURAGESIC-100 [Suspect]
     Route: 062
  32. FENTANYL-100 [Suspect]
     Route: 062
  33. FENTANYL-100 [Suspect]
     Route: 062
     Dates: start: 20090101
  34. FENTANYL-100 [Suspect]
     Dosage: 75 UG/HR OR 100 UG/HR
     Route: 062
  35. FENTANYL-100 [Suspect]
     Indication: SPINAL DISORDER
     Dosage: 100 UG/HR + 25 UG/HR
     Route: 062
     Dates: start: 20080101
  36. FENTANYL-100 [Suspect]
     Route: 062
  37. DURAGESIC-100 [Suspect]
     Dosage: 100 UG/HR + 25 UG/HR
     Route: 062
     Dates: start: 20090101
  38. DURAGESIC-100 [Suspect]
     Route: 062
     Dates: end: 20040101
  39. DURAGESIC-100 [Suspect]
     Dosage: 100 UG/HR + 25 UG/HR
     Route: 062
     Dates: start: 20080101
  40. DURAGESIC-100 [Suspect]
     Indication: FIBROMYALGIA
     Route: 062
     Dates: start: 20080101, end: 20090101
  41. DURAGESIC-100 [Suspect]
     Route: 062
  42. FENTANYL-100 [Suspect]
     Dosage: 75 UG/HR OR 100 UG/HR
     Route: 062
  43. FENTANYL-100 [Suspect]
     Route: 062
     Dates: start: 20080101
  44. DURAGESIC-100 [Suspect]
     Route: 062
     Dates: start: 20080101
  45. DURAGESIC-100 [Suspect]
     Route: 062
     Dates: start: 20080101
  46. FENTANYL-100 [Suspect]
     Dosage: 75 UG/HR OR 100 UG/HR
     Route: 062
  47. FENTANYL-100 [Suspect]
     Indication: MIGRAINE
     Dosage: 100 UG/HR + 25 UG/HR
     Route: 062
     Dates: start: 20080101
  48. FENTANYL-100 [Suspect]
     Dosage: 75 UG/HR OR 100 UG/HR
     Route: 062
  49. DURAGESIC-100 [Suspect]
     Route: 062
  50. DURAGESIC-100 [Suspect]
     Route: 062
     Dates: start: 20080101, end: 20090101
  51. DURAGESIC-100 [Suspect]
     Route: 062
  52. DURAGESIC-100 [Suspect]
     Dosage: 75 UG/HR OR 100 UG/HR
     Route: 062
  53. DURAGESIC-100 [Suspect]
     Route: 062
     Dates: end: 20040101
  54. FENTANYL-100 [Suspect]
     Indication: RAYNAUD'S PHENOMENON
     Route: 062
     Dates: start: 20090101
  55. FENTANYL-100 [Suspect]
     Dosage: 100 UG/HR + 25 UG/HR
     Route: 062
     Dates: start: 20080101
  56. FENTANYL-100 [Suspect]
     Route: 062
  57. FENTANYL-100 [Suspect]
     Route: 062
  58. DURAGESIC-100 [Suspect]
     Dosage: 100 UG/HR + 25 UG/HR
     Route: 062
     Dates: start: 20090101
  59. DURAGESIC-100 [Suspect]
     Dosage: 75 UG/HR OR 100 UG/HR
     Route: 062
  60. DURAGESIC-100 [Suspect]
     Route: 062
  61. DURAGESIC-100 [Suspect]
     Route: 062
     Dates: start: 20080101
  62. DURAGESIC-100 [Suspect]
     Route: 062
  63. FENTANYL-100 [Suspect]
     Route: 062
  64. DURAGESIC-100 [Suspect]
     Dosage: 100 UG/HR + 25 UG/HR
     Route: 062
     Dates: start: 20090101

REACTIONS (15)
  - ABNORMAL LOSS OF WEIGHT [None]
  - DRUG EFFECT PROLONGED [None]
  - POOR QUALITY DRUG ADMINISTERED [None]
  - DRUG ADMINISTERED AT INAPPROPRIATE SITE [None]
  - BEDRIDDEN [None]
  - INCORRECT STORAGE OF DRUG [None]
  - PRODUCT QUALITY ISSUE [None]
  - DRUG INEFFECTIVE [None]
  - FEELING ABNORMAL [None]
  - WITHDRAWAL SYNDROME [None]
  - PAIN [None]
  - EATING DISORDER [None]
  - MALAISE [None]
  - DETOXIFICATION [None]
  - THERAPEUTIC RESPONSE DECREASED [None]
